FAERS Safety Report 23757777 (Version 1)
Quarter: 2024Q2

REPORT INFORMATION
  Report Type: Spontaneous
  Country: JP (occurrence: JP)
  Receive Date: 20240418
  Receipt Date: 20240418
  Transmission Date: 20240715
  Serious: Yes (Other)
  Sender: FDA-Public Use
  Company Number: JP-ABBVIE-5721143

PATIENT
  Sex: Male

DRUGS (1)
  1. RINVOQ [Suspect]
     Active Substance: UPADACITINIB
     Indication: Rheumatoid arthritis
     Dosage: DURATION TEXT: ABOUT 3 YEARS
     Route: 048
     Dates: end: 2023

REACTIONS (2)
  - Gastric cancer [Unknown]
  - Joint stiffness [Unknown]

NARRATIVE: CASE EVENT DATE: 20231001
